FAERS Safety Report 6505231-2 (Version None)
Quarter: 2009Q4

REPORT INFORMATION
  Report Type: 
  Country: None (occurrence: None)
  Receive Date: 20091218
  Receipt Date: 20091209
  Transmission Date: 20100525
  Serious: Yes (Other)
  Sender: FDA-Public Use
  Company Number: US-JNJFOC-20091203380

PATIENT
  Sex: Male
  Weight: 92.99 kg

DRUGS (2)
  1. INVEGA [Suspect]
     Indication: MANIA
     Dosage: 6 MG IN MORNING AND 6 MG IN EVENING
     Route: 048
  2. TRILEPTAL [Concomitant]
     Indication: ANXIETY

REACTIONS (1)
  - WEIGHT INCREASED [None]
